FAERS Safety Report 8263131-4 (Version None)
Quarter: 2012Q2

REPORT INFORMATION
  Report Type: 
  Country: None (occurrence: None)
  Receive Date: 20120405
  Receipt Date: 20120323
  Transmission Date: 20120825
  Serious: Yes (Other)
  Sender: FDA-Public Use
  Company Number: AT-ELI_LILLY_AND_COMPANY-AT201203007774

PATIENT
  Sex: Female

DRUGS (1)
  1. ZYPREXA [Suspect]
     Dosage: 80 DF, SINGLE
     Route: 048
     Dates: start: 20110718, end: 20110718

REACTIONS (7)
  - COMA [None]
  - SINUS TACHYCARDIA [None]
  - HYPOTENSION [None]
  - HYPOKALAEMIA [None]
  - CHILLS [None]
  - CONVULSION [None]
  - INTENTIONAL OVERDOSE [None]
